FAERS Safety Report 8510326-8 (Version None)
Quarter: 2012Q3

REPORT INFORMATION
  Report Type: 
  Country: None (occurrence: None)
  Receive Date: 20120713
  Receipt Date: 20120629
  Transmission Date: 20120928
  Serious: Yes (Hospitalization)
  Sender: FDA-Public Use
  Company Number: US-ROCHE-GNE313851

PATIENT
  Sex: Female

DRUGS (22)
  1. OMALIZUMAB [Suspect]
     Route: 058
     Dates: start: 20120206
  2. OMALIZUMAB [Suspect]
     Route: 058
     Dates: start: 20110801
  3. ACETAMINOPHEN [Concomitant]
     Indication: HEADACHE
     Dosage: UNK
     Route: 048
  4. FLINTSTONES VITAMINS [Concomitant]
     Indication: PREGNANCY
     Dosage: UNK
     Route: 048
  5. OMALIZUMAB [Suspect]
     Route: 058
     Dates: start: 20111221
  6. OMALIZUMAB [Suspect]
     Route: 058
     Dates: start: 20120425
  7. OMALIZUMAB [Suspect]
     Route: 058
     Dates: start: 20110701
  8. OMALIZUMAB [Suspect]
     Route: 058
     Dates: start: 20110815
  9. NEXIUM [Concomitant]
     Indication: GASTROOESOPHAGEAL REFLUX DISEASE
     Dosage: UNK
     Route: 048
  10. CALCIUM CARBONATE [Concomitant]
     Indication: DYSPEPSIA
     Dosage: UNK
     Route: 048
  11. OMALIZUMAB [Suspect]
     Route: 058
     Dates: start: 20111001
  12. ZOLOFT [Concomitant]
     Indication: DEPRESSION
     Dosage: UNK
     Route: 048
  13. ADVAIR DISKUS 100/50 [Concomitant]
     Indication: ASTHMA
  14. OMALIZUMAB [Suspect]
     Indication: ASTHMA
     Route: 058
     Dates: start: 20090114
  15. OMALIZUMAB [Suspect]
     Route: 058
     Dates: start: 20110601
  16. PROAIR HFA [Concomitant]
     Indication: ASTHMA
  17. OMALIZUMAB [Suspect]
     Route: 058
     Dates: start: 20111015
  18. OMALIZUMAB [Suspect]
     Route: 058
     Dates: start: 20111201
  19. OMALIZUMAB [Suspect]
     Route: 058
     Dates: start: 20120215
  20. OMALIZUMAB [Suspect]
     Route: 058
     Dates: start: 20120301
  21. SUDAFED 12 HOUR [Concomitant]
     Indication: NASOPHARYNGITIS
     Dosage: UNK
     Route: 048
  22. MULTI-VITAMINS [Concomitant]
     Indication: PRODUCT USED FOR UNKNOWN INDICATION

REACTIONS (4)
  - POSTPARTUM DEPRESSION [None]
  - URINARY INCONTINENCE [None]
  - PNEUMONIA [None]
  - MATERNAL EXPOSURE DURING PREGNANCY [None]
